FAERS Safety Report 4805707-X (Version None)
Quarter: 2005Q4

REPORT INFORMATION
  Report Type: 
  Country: None (occurrence: None)
  Receive Date: 20051021
  Receipt Date: 20050920
  Transmission Date: 20060501
  Serious: Yes (Other)
  Sender: FDA-Public Use
  Company Number: US-ROCHE-418455

PATIENT
  Age: 16 Year
  Sex: Female
  Weight: 61.2 kg

DRUGS (3)
  1. ACCUTANE [Suspect]
     Indication: ACNE
     Dosage: FIRST COURSE. TAKEN AT NIGHT.
     Route: 048
     Dates: start: 20040815, end: 20050215
  2. ACCUTANE [Suspect]
     Dosage: SECOND COURSE. TAKEN AT NIGHT.
     Route: 048
     Dates: start: 20050615
  3. BIRTH CONTROL PILLS NOS [Concomitant]
     Route: 048

REACTIONS (2)
  - BULIMIA NERVOSA [None]
  - MOOD ALTERED [None]
